FAERS Safety Report 11182142 (Version 1)
Quarter: 2015Q2

REPORT INFORMATION
  Report Type: Spontaneous
  Country: JP (occurrence: JP)
  Receive Date: 20150611
  Receipt Date: 20150611
  Transmission Date: 20150821
  Serious: Yes (Hospitalization)
  Sender: FDA-Public Use
  Company Number: JP-BAYER-2015-231882

PATIENT
  Age: 58 Year

DRUGS (2)
  1. BAYASPIRIN [Suspect]
     Active Substance: ASPIRIN
     Route: 048
  2. CILOSTAZOL. [Interacting]
     Active Substance: CILOSTAZOL
     Route: 048

REACTIONS (4)
  - Back pain [Recovered/Resolved]
  - Drug interaction [None]
  - Spinal epidural haematoma [Recovered/Resolved]
  - Neck pain [Recovered/Resolved]
